FAERS Safety Report 25310808 (Version 3)
Quarter: 2025Q2

REPORT INFORMATION
  Report Type: Spontaneous
  Country: JP (occurrence: JP)
  Receive Date: 20250514
  Receipt Date: 20250625
  Transmission Date: 20250717
  Serious: Yes (Other)
  Sender: GLAXOSMITHKLINE
  Company Number: JP-GSKJP-JP2025JPN058093AA

PATIENT
  Age: 79 Year
  Sex: Male

DRUGS (10)
  1. DAPRODUSTAT [Suspect]
     Active Substance: DAPRODUSTAT
     Indication: Nephrogenic anaemia
  2. DARBEPOETIN ALFA [Concomitant]
     Active Substance: DARBEPOETIN ALFA
     Indication: Nephrogenic anaemia
     Dosage: 120 ?, WE
  3. LANSOPRAZOLE [Concomitant]
     Active Substance: LANSOPRAZOLE
  4. REBAMIPIDE [Concomitant]
     Active Substance: REBAMIPIDE
  5. Bacillus mesentericus [Concomitant]
     Dosage: 1 DF, TID
  6. URSODIOL [Concomitant]
     Active Substance: URSODIOL
  7. RAMELTEON [Concomitant]
     Active Substance: RAMELTEON
  8. BELSOMRA [Concomitant]
     Active Substance: SUVOREXANT
  9. TRAZODONE HYDROCHLORIDE [Concomitant]
     Active Substance: TRAZODONE HYDROCHLORIDE
  10. SHAKUYAKUKANZOTO [Concomitant]
     Active Substance: HERBALS

REACTIONS (3)
  - Haematochezia [Recovered/Resolved]
  - Colitis ischaemic [Recovered/Resolved]
  - Pain [Recovered/Resolved]

NARRATIVE: CASE EVENT DATE: 20250421
